FAERS Safety Report 10029250 (Version 1)
Quarter: 2014Q1

REPORT INFORMATION
  Report Type: Spontaneous
  Country: IN (occurrence: IN)
  Receive Date: 20140321
  Receipt Date: 20140321
  Transmission Date: 20141002
  Serious: Yes (Hospitalization, Other)
  Sender: FDA-Public Use
  Company Number: PHHY2014IN031579

PATIENT
  Age: 60 Year
  Sex: Male

DRUGS (1)
  1. IMATINIB [Suspect]
     Indication: CHRONIC MYELOID LEUKAEMIA
     Dosage: 400 MG, OD

REACTIONS (11)
  - Pneumonia klebsiella [Unknown]
  - Hydronephrosis [Unknown]
  - Haemoptysis [Unknown]
  - Cough [Unknown]
  - Sepsis [Unknown]
  - Disseminated intravascular coagulation [Unknown]
  - Renal failure acute [Unknown]
  - Bladder transitional cell carcinoma [Unknown]
  - Concomitant disease progression [Unknown]
  - Bone marrow disorder [Not Recovered/Not Resolved]
  - Pancytopenia [Unknown]
